FAERS Safety Report 5537940-6 (Version None)
Quarter: 2007Q4

REPORT INFORMATION
  Report Type: 
  Country: None (occurrence: None)
  Receive Date: 20071207
  Receipt Date: 20071126
  Transmission Date: 20080405
  Serious: Yes (Other)
  Sender: FDA-Public Use
  Company Number: AT-PFIZER INC-2007100268

PATIENT
  Sex: Female

DRUGS (1)
  1. DETRUSITOL [Suspect]
     Indication: INCONTINENCE
     Route: 048

REACTIONS (1)
  - BLOOD PRESSURE INCREASED [None]
